FAERS Safety Report 13633476 (Version 1)
Quarter: 2017Q2

REPORT INFORMATION
  Report Type: Spontaneous
  Country: US (occurrence: US)
  Receive Date: 20170531
  Receipt Date: 20170531
  Transmission Date: 20170830
  Serious: No
  Sender: FDA-Public Use
  Company Number: US-ASTELLAS-1548810

PATIENT
  Sex: Female
  Weight: 45.85 kg

DRUGS (5)
  1. MEGACE [Concomitant]
     Active Substance: MEGESTROL ACETATE
     Dosage: 2 TABS BY MOUTH FOUR TIMES A DAY FOR 30 DAYS (120 TABS)
     Route: 048
  2. TARCEVA [Suspect]
     Active Substance: ERLOTINIB HYDROCHLORIDE
     Indication: LUNG NEOPLASM MALIGNANT
     Route: 048
     Dates: start: 20131218
  3. REQUIP [Concomitant]
     Active Substance: ROPINIROLE HYDROCHLORIDE
     Route: 065
  4. LOVENOX [Concomitant]
     Active Substance: ENOXAPARIN SODIUM
     Dosage: DOSE WAS REDUCED TO 40 MG SUBCUTANEOUIS ONCE DAILY
     Route: 058
  5. CARAFATE [Concomitant]
     Active Substance: SUCRALFATE
     Dosage: 1 TABS BY MOUTH FOUR TIMES A DAY  (120 TABS)
     Route: 048

REACTIONS (6)
  - Metastases to lymph nodes [Unknown]
  - Metastases to liver [Unknown]
  - Periorbital haemorrhage [Unknown]
  - Malaise [Recovered/Resolved]
  - Dyspnoea [Unknown]
  - Fatigue [Unknown]
